FAERS Safety Report 4297268-1 (Version None)
Quarter: 2004Q1

REPORT INFORMATION
  Report Type: 
  Country: None (occurrence: None)
  Receive Date: 20040213
  Receipt Date: 20040202
  Transmission Date: 20041129
  Serious: Yes (Hospitalization)
  Sender: FDA-Public Use
  Company Number: MESA00204000309

PATIENT
  Sex: Female
  Weight: 60 kg

DRUGS (1)
  1. ROWASA [Suspect]
     Indication: PROCTITIS
     Dosage: 4 G QD RC
     Route: 054
     Dates: start: 20031222, end: 20040101

REACTIONS (1)
  - COLITIS ULCERATIVE [None]
